FAERS Safety Report 5475221-X (Version None)
Quarter: 2007Q4

REPORT INFORMATION
  Report Type: 
  Country: None (occurrence: None)
  Receive Date: 20071002
  Receipt Date: 20070920
  Transmission Date: 20080405
  Serious: Yes (Other)
  Sender: FDA-Public Use
  Company Number: JP-PFIZER INC-2007079548

PATIENT
  Age: 71 Year
  Sex: Male

DRUGS (1)
  1. HALCION [Suspect]
     Indication: INSOMNIA
     Dosage: DAILY DOSE:.25MG
     Route: 048
     Dates: start: 20070101, end: 20070501

REACTIONS (3)
  - ROAD TRAFFIC ACCIDENT [None]
  - SOMNOLENCE [None]
  - SUDDEN ONSET OF SLEEP [None]
